FAERS Safety Report 9100011 (Version 1)
Quarter: 2013Q1

REPORT INFORMATION
  Report Type: Spontaneous
  Country: US (occurrence: US)
  Receive Date: 20130215
  Receipt Date: 20130215
  Transmission Date: 20140127
  Serious: No
  Sender: FDA-Public Use
  Company Number: US-PFIZER INC-2013055209

PATIENT
  Sex: Female

DRUGS (14)
  1. NEURONTIN [Suspect]
     Indication: NEURALGIA
     Dosage: 300 MG, 3X/DAY
  2. NEURONTIN [Suspect]
     Indication: FIBROMYALGIA
     Dosage: 300 MG, 2X/DAY
     Dates: start: 201301
  3. NEURONTIN [Suspect]
     Dosage: 300 MG, 1X/DAY
     Dates: start: 201302
  4. VALTREX [Concomitant]
     Dosage: 500MG DAILY
  5. SYNTHROID [Concomitant]
     Dosage: 0.125MG DAILY
  6. WELLBUTRIN XL [Concomitant]
     Dosage: 200 MG, 2X/DAY
  7. VITAMIN D [Concomitant]
     Dosage: 2000 IU, UNK
  8. NERVIJEN [Concomitant]
     Dosage: 200MG DAILY
  9. HYDROCHLOROTHIAZIDE [Concomitant]
     Dosage: 25MG DAILY
  10. ZANTAC [Concomitant]
     Dosage: 150 MG, 2X/DAY
  11. ULTRAM [Concomitant]
     Dosage: UNK, AS NEEDED (UPTO SIX TABLETS A DAY)
  12. PERCOCET [Concomitant]
     Dosage: OXYCODONE HYDROCHLORIDE 5 MG / PARACETAMOL 325 MG, AS NEEDED
  13. VALIUM [Concomitant]
     Dosage: 5 MG, AS NEEDED
  14. VICODIN [Concomitant]
     Indication: PAIN
     Dosage: HYDROCODONE BITARTRATE 10MG / PARACETAMOL 660 MG,  AS NEEDED

REACTIONS (2)
  - Intentional drug misuse [Unknown]
  - Pain [Unknown]
